FAERS Safety Report 7747278-4 (Version None)
Quarter: 2011Q3

REPORT INFORMATION
  Report Type: 
  Country: None (occurrence: None)
  Receive Date: 20110913
  Receipt Date: 20110910
  Transmission Date: 20111222
  Serious: Yes (Other)
  Sender: FDA-Public Use
  Company Number: US-PFIZER INC-2011213018

PATIENT
  Sex: Female
  Weight: 57.596 kg

DRUGS (3)
  1. CHANTIX [Suspect]
     Indication: SMOKING CESSATION THERAPY
     Dosage: 0.5 MG, 1X/DAY
     Route: 048
     Dates: start: 20110805
  2. CHANTIX [Suspect]
     Dosage: 1 MG, 2X/DAY
     Route: 048
  3. BLACK COHOSH [Concomitant]
     Indication: MENOPAUSAL DISORDER
     Dosage: UNK

REACTIONS (2)
  - DYSLEXIA [None]
  - MOOD ALTERED [None]
